FAERS Safety Report 7217498-6 (Version None)
Quarter: 2010Q4

REPORT INFORMATION
  Report Type: 
  Country: None (occurrence: None)
  Receive Date: 20101229
  Receipt Date: 20101220
  Transmission Date: 20110411
  Serious: Yes (Hospitalization)
  Sender: FDA-Public Use
  Company Number: WAES 1010USA03660

PATIENT
  Age: 77 Year
  Sex: Female
  Weight: 75.7507 kg

DRUGS (6)
  1. RIDAFOROLIMUS [Suspect]
     Indication: NON-SMALL CELL LUNG CANCER
     Dosage: 40 MG/DAILY/PO
     Route: 048
     Dates: start: 20100927, end: 20101025
  2. LISINOPRIL [Suspect]
     Indication: HYPERTENSION
     Dosage: 20 MG /DAILY/PO
     Route: 048
     Dates: start: 20080101, end: 20101025
  3. ADVAIR [Concomitant]
  4. TOBRADEX [Concomitant]
  5. TRAVATAN Z [Concomitant]
  6. PREDNISOLONE [Concomitant]

REACTIONS (15)
  - ANGIOEDEMA [None]
  - APHASIA [None]
  - DECREASED APPETITE [None]
  - DYSPHAGIA [None]
  - DYSPNOEA [None]
  - ENTEROBACTER INFECTION [None]
  - HAEMATOCRIT DECREASED [None]
  - HAEMOGLOBIN DECREASED [None]
  - KLEBSIELLA INFECTION [None]
  - PLATELET COUNT DECREASED [None]
  - PLEURAL EFFUSION [None]
  - PNEUMONIA [None]
  - SWOLLEN TONGUE [None]
  - VASODILATATION [None]
  - WHITE BLOOD CELL COUNT DECREASED [None]
